FAERS Safety Report 25797189 (Version 1)
Quarter: 2025Q3

REPORT INFORMATION
  Report Type: Spontaneous
  Country: US (occurrence: US)
  Receive Date: 20250912
  Receipt Date: 20250912
  Transmission Date: 20251020
  Serious: Yes (Life-Threatening, Other)
  Sender: FRESENIUS KABI
  Company Number: US-FreseniusKabi-FK202512538

PATIENT
  Age: 16 Year
  Sex: Male
  Weight: 38.4 kg

DRUGS (17)
  1. KETAMINE [Suspect]
     Active Substance: KETAMINE
     Indication: Spinal fusion surgery
     Route: 040
  2. KETAMINE [Suspect]
     Active Substance: KETAMINE
     Indication: Anaesthesia
  3. ROCURONIUM [Suspect]
     Active Substance: ROCURONIUM BROMIDE
     Indication: Spinal fusion surgery
  4. ROCURONIUM [Suspect]
     Active Substance: ROCURONIUM BROMIDE
     Indication: Anaesthesia
  5. FENTANYL [Concomitant]
     Active Substance: FENTANYL
     Indication: General anaesthesia
  6. FENTANYL [Concomitant]
     Active Substance: FENTANYL
     Indication: Spinal fusion surgery
  7. LIDOCAINE [Concomitant]
     Active Substance: LIDOCAINE
     Indication: General anaesthesia
     Route: 042
  8. LIDOCAINE [Concomitant]
     Active Substance: LIDOCAINE
     Indication: Spinal fusion surgery
  9. PROPOFOL [Concomitant]
     Active Substance: PROPOFOL
     Indication: General anaesthesia
     Route: 042
  10. PROPOFOL [Concomitant]
     Active Substance: PROPOFOL
     Indication: Spinal fusion surgery
  11. SUCCINYLCHOLINE [Concomitant]
     Active Substance: SUCCINYLCHOLINE
     Indication: General anaesthesia
  12. SUCCINYLCHOLINE [Concomitant]
     Active Substance: SUCCINYLCHOLINE
     Indication: Spinal fusion surgery
  13. SUFENTANIL [Concomitant]
     Active Substance: SUFENTANIL
     Indication: Anaesthesia
     Route: 042
  14. SUFENTANIL [Concomitant]
     Active Substance: SUFENTANIL
     Indication: Spinal fusion surgery
  15. TRANEXAMIC ACID [Concomitant]
     Active Substance: TRANEXAMIC ACID
     Indication: Prophylaxis
  16. GENTAMICIN [Concomitant]
     Active Substance: GENTAMICIN
     Indication: Antibiotic prophylaxis
  17. CEFAZOLIN [Concomitant]
     Active Substance: CEFAZOLIN
     Indication: Antibiotic prophylaxis

REACTIONS (1)
  - Anaphylactic reaction [Recovered/Resolved]
